FAERS Safety Report 23703531 (Version 1)
Quarter: 2024Q2

REPORT INFORMATION
  Report Type: Spontaneous
  Country: AU (occurrence: AU)
  Receive Date: 20240403
  Receipt Date: 20240403
  Transmission Date: 20240715
  Serious: Yes (Other)
  Sender: FDA-Public Use
  Company Number: AU-AUS-SPO/AUS/24/0005196

PATIENT
  Age: 79 Year
  Sex: Male

DRUGS (9)
  1. CAPECITABINE [Suspect]
     Active Substance: CAPECITABINE
     Indication: Product used for unknown indication
  2. TRASTUZUMAB [Suspect]
     Active Substance: TRASTUZUMAB
     Indication: Product used for unknown indication
  3. OXALIPLATIN [Suspect]
     Active Substance: OXALIPLATIN
     Indication: Product used for unknown indication
  4. ATORVASTATIN [Concomitant]
     Active Substance: ATORVASTATIN
     Indication: Product used for unknown indication
  5. ASPIRIN [Concomitant]
     Active Substance: ASPIRIN
     Indication: Product used for unknown indication
  6. Amlodipine besilate; telmisartan [Concomitant]
     Indication: Product used for unknown indication
  7. DEXAMETHASONE [Concomitant]
     Active Substance: DEXAMETHASONE
     Indication: Product used for unknown indication
  8. METOCLOPRAMIDE [Concomitant]
     Active Substance: METOCLOPRAMIDE
     Indication: Product used for unknown indication
  9. PALONOSETRON [Concomitant]
     Active Substance: PALONOSETRON
     Indication: Product used for unknown indication

REACTIONS (4)
  - Upper gastrointestinal haemorrhage [Unknown]
  - Hypokalaemia [Unknown]
  - Oedema peripheral [Unknown]
  - Diarrhoea [Unknown]
